FAERS Safety Report 21908769 (Version 3)
Quarter: 2023Q4

REPORT INFORMATION
  Report Type: Report from Study
  Country: HU (occurrence: HU)
  Receive Date: 20230125
  Receipt Date: 20231109
  Transmission Date: 20240109
  Serious: Yes (Death, Other)
  Sender: FDA-Public Use
  Company Number: HU-002147023-NVSC2022HU286991

PATIENT
  Age: 67 Year
  Sex: Female

DRUGS (7)
  1. KISQALI [Suspect]
     Active Substance: RIBOCICLIB
     Indication: Breast cancer
     Dosage: UNK (FIRST CYCLE)
     Route: 048
     Dates: start: 20221117, end: 20221208
  2. KISQALI [Suspect]
     Active Substance: RIBOCICLIB
     Indication: Bone marrow tumour cell infiltration
     Dosage: 600 MG (1X FOR 21 DAYS THEN 7 DAYS BREAK)
     Route: 065
     Dates: start: 20221117
  3. KISQALI [Suspect]
     Active Substance: RIBOCICLIB
     Dosage: 600 MG, QD (1X)
     Route: 065
     Dates: start: 20221117, end: 20221205
  4. KISQALI [Suspect]
     Active Substance: RIBOCICLIB
     Dosage: 600 MG, QD (1X)
     Route: 048
     Dates: start: 20221217
  5. KISQALI [Suspect]
     Active Substance: RIBOCICLIB
     Dosage: 400 MG, QD (DAILY 1X, THE 2ND CYCLE)
     Route: 048
     Dates: start: 20230105
  6. KISQALI [Suspect]
     Active Substance: RIBOCICLIB
     Dosage: 400 MG, QD (1X400 MG)
     Route: 048
     Dates: start: 20230925
  7. ERYTHROPOIETIN [Suspect]
     Active Substance: ERYTHROPOIETIN
     Indication: Anaemia
     Dosage: 40000 IU, QW
     Route: 058
     Dates: start: 20221221

REACTIONS (9)
  - Metastases to bone marrow [Unknown]
  - Neutropenia [Recovered/Resolved]
  - Neutropenia [Recovered/Resolved]
  - Thrombocytopenia [Recovered/Resolved]
  - Anaemia [Not Recovered/Not Resolved]
  - Fatigue [Unknown]
  - COVID-19 [Recovered/Resolved]
  - Cough [Unknown]
  - Product use in unapproved indication [Unknown]

NARRATIVE: CASE EVENT DATE: 20221204
